FAERS Safety Report 14831098 (Version 5)
Quarter: 2018Q3

REPORT INFORMATION
  Report Type: Report from Study
  Country: US (occurrence: US)
  Receive Date: 20180501
  Receipt Date: 20180810
  Transmission Date: 20181010
  Serious: Yes (Hospitalization)
  Sender: FDA-Public Use
  Company Number: US-AMGEN-USACT2018057565

PATIENT
  Age: 69 Year
  Sex: Female
  Weight: 60.8 kg

DRUGS (12)
  1. ACETAMINOPHEN. [Concomitant]
     Active Substance: ACETAMINOPHEN
     Dosage: 650 MG, UNK
     Route: 048
     Dates: start: 20180330, end: 20180330
  2. HYDROMORPHONE HCL [Concomitant]
     Active Substance: HYDROMORPHONE HYDROCHLORIDE
     Dosage: 2 UNK, UNK
     Route: 048
     Dates: start: 20180315, end: 20180406
  3. ATEZOLIZUMAB. [Suspect]
     Active Substance: ATEZOLIZUMAB
     Indication: COLORECTAL CANCER
     Dosage: 270 ML, UNK
     Route: 042
     Dates: start: 20180329, end: 20180329
  4. ATORVASTATIN [Concomitant]
     Active Substance: ATORVASTATIN
     Dosage: 20 MG, UNK
     Route: 048
     Dates: start: 20180123
  5. FENTANYL. [Concomitant]
     Active Substance: FENTANYL
     Dosage: 12 UNK, UNK
     Route: 061
     Dates: start: 201804
  6. MIRALAX [Concomitant]
     Active Substance: POLYETHYLENE GLYCOL 3350
     Dosage: 1 UNK, UNK
     Route: 048
     Dates: start: 20180402, end: 20180424
  7. BISACODYL. [Concomitant]
     Active Substance: BISACODYL
     Dosage: 5?10 MG, UNK
     Dates: start: 20180406, end: 20180424
  8. TRAMADOL. [Concomitant]
     Active Substance: TRAMADOL
     Dosage: 50 MG, UNK
     Route: 048
     Dates: start: 20180406
  9. TYLENOL [Concomitant]
     Active Substance: ACETAMINOPHEN
     Indication: PYREXIA
     Dosage: UNK
     Dates: start: 201803
  10. TALIMOGENE LAHERPAREPVEC [Suspect]
     Active Substance: TALIMOGENE LAHERPAREPVEC
     Indication: COLORECTAL CANCER
     Dosage: 3 ML, UNK
     Route: 026
     Dates: start: 20180329, end: 20180329
  11. ZOLOFT [Concomitant]
     Active Substance: SERTRALINE HYDROCHLORIDE
     Dosage: 100 MG, UNK
     Route: 048
     Dates: start: 20171127
  12. NORMAL SALINE [Concomitant]
     Active Substance: SODIUM CHLORIDE
     Dosage: 500 ML, UNK
     Route: 042
     Dates: start: 20180330, end: 20180330

REACTIONS (1)
  - Thrombocytopenia [Recovered/Resolved]

NARRATIVE: CASE EVENT DATE: 20180419
